FAERS Safety Report 7154071-2 (Version None)
Quarter: 2010Q4

REPORT INFORMATION
  Report Type: 
  Country: None (occurrence: None)
  Receive Date: 20101124
  Receipt Date: 20101110
  Transmission Date: 20110411
  Serious: Yes (Hospitalization)
  Sender: FDA-Public Use
  Company Number: 017520

PATIENT
  Sex: Female
  Weight: 65 kg

DRUGS (11)
  1. CERTOLIZUMAB PEGOL (CERTOLIZUMAB PEGOL) [Suspect]
     Indication: RHEUMATOID ARTHRITIS
     Dosage: 200 MG, 200 MG, NBR OF DOSES: 9 SUBCUTANEOUS
     Route: 058
     Dates: start: 20100430
  2. METEX [Concomitant]
  3. PREDNISOLONE [Concomitant]
  4. TRAMADOL HCL [Concomitant]
  5. TEBESIUM [Concomitant]
  6. DECORTIN [Concomitant]
  7. METHOTREXATE [Concomitant]
  8. FOLSAN [Concomitant]
  9. PANTOZOL [Concomitant]
  10. CALCIUM [Concomitant]
  11. MAGNESIUM [Concomitant]

REACTIONS (15)
  - ALANINE AMINOTRANSFERASE INCREASED [None]
  - ARTHRALGIA [None]
  - ASPARTATE AMINOTRANSFERASE INCREASED [None]
  - BLOOD GLUCOSE INCREASED [None]
  - BLOOD IRON DECREASED [None]
  - BLOOD THYROID STIMULATING HORMONE DECREASED [None]
  - CARDIOMEGALY [None]
  - GAMMA-GLUTAMYLTRANSFERASE INCREASED [None]
  - HERPES ZOSTER [None]
  - JOINT SWELLING [None]
  - LYMPHOCYTE PERCENTAGE DECREASED [None]
  - MUSCULOSKELETAL PAIN [None]
  - MUSCULOSKELETAL STIFFNESS [None]
  - NEUTROPHIL PERCENTAGE INCREASED [None]
  - SERUM FERRITIN INCREASED [None]
